FAERS Safety Report 8291781 (Version 2)
Quarter: 2013Q2

REPORT INFORMATION
  Report Type: Spontaneous
  Country: US (occurrence: US)
  Receive Date: 20111214
  Receipt Date: 20130501
  Transmission Date: 20140414
  Serious: Yes (Life-Threatening, Hospitalization, Other)
  Sender: FDA-Public Use
  Company Number: US-RB-035324-11

PATIENT
  Age: 54 Year
  Sex: Male

DRUGS (2)
  1. SUBOXONE TABLET [Suspect]
     Indication: DRUG DEPENDENCE
     Route: 060
     Dates: start: 20070401, end: 2012
  2. LYRICA [Concomitant]
     Indication: PAIN
     Dosage: DOSING DETAILS NOT PROVIDED
     Route: 065
     Dates: start: 2012

REACTIONS (1)
  - Myocardial infarction [Recovered/Resolved]
